FAERS Safety Report 13077309 (Version 2)
Quarter: 2017Q1

REPORT INFORMATION
  Report Type: Spontaneous
  Country: CN (occurrence: CN)
  Receive Date: 20161230
  Receipt Date: 20170126
  Transmission Date: 20170428
  Serious: Yes (Hospitalization)
  Sender: FDA-Public Use
  Company Number: CN-JNJFOC-20161218120

PATIENT

DRUGS (2)
  1. MOTRIN CHILDREN [Suspect]
     Active Substance: IBUPROFEN
     Route: 065
  2. MOTRIN CHILDREN [Suspect]
     Active Substance: IBUPROFEN
     Indication: PYREXIA
     Route: 065

REACTIONS (3)
  - Wrong technique in product usage process [Unknown]
  - Product contamination [Unknown]
  - Drug ineffective [Unknown]
